FAERS Safety Report 5620502-X (Version None)
Quarter: 2008Q1

REPORT INFORMATION
  Report Type: 
  Country: None (occurrence: None)
  Receive Date: 20080208
  Receipt Date: 20080115
  Transmission Date: 20080703
  Serious: No
  Sender: FDA-Public Use
  Company Number: US-BOEHRINGER INGELHEIM GMBH, GERMANY-2008-BP-00745BP

PATIENT
  Age: 61 Year
  Sex: Female

DRUGS (11)
  1. SPIRIVA [Suspect]
     Indication: CHRONIC OBSTRUCTIVE PULMONARY DISEASE
     Route: 055
     Dates: start: 20080103
  2. SYNTHROID [Concomitant]
     Indication: THYROID DISORDER
  3. PROCARDIA [Concomitant]
     Indication: RAYNAUD'S PHENOMENON
  4. PREDNISONE TAB [Concomitant]
     Indication: CHRONIC OBSTRUCTIVE PULMONARY DISEASE
  5. ADVAIR DISKUS 100/50 [Concomitant]
     Indication: CHRONIC OBSTRUCTIVE PULMONARY DISEASE
  6. VITAMINS [Concomitant]
  7. URSODIOL [Concomitant]
     Indication: BILIARY CIRRHOSIS PRIMARY
  8. MYOCALCIN [Concomitant]
     Indication: OSTEOPOROSIS
  9. LITHIUM CARBONATE [Concomitant]
     Indication: BIPOLAR DISORDER
  10. DUONEB [Concomitant]
     Indication: CHRONIC OBSTRUCTIVE PULMONARY DISEASE
  11. CALCIUM GLUCONATE [Concomitant]
     Indication: OSTEOPOROSIS

REACTIONS (1)
  - PLATELET COUNT DECREASED [None]
